FAERS Safety Report 14293486 (Version 2)
Quarter: 2018Q4

REPORT INFORMATION
  Report Type: Spontaneous
  Country: CA (occurrence: CA)
  Receive Date: 20171215
  Receipt Date: 20181115
  Transmission Date: 20190204
  Serious: Yes (Hospitalization, Other)
  Sender: FDA-Public Use
  Company Number: CA-009507513-1412CAN011428

PATIENT
  Sex: Female

DRUGS (2)
  1. EZETROL [Suspect]
     Active Substance: EZETIMIBE
     Indication: TYPE IIA HYPERLIPIDAEMIA
     Dosage: 10 MG (1 DOSAGE FORM), DAILY (QD)
     Route: 048
     Dates: start: 2008
  2. WARFARIN [Concomitant]
     Active Substance: WARFARIN

REACTIONS (5)
  - Fall [Recovering/Resolving]
  - Pulmonary embolism [Recovering/Resolving]
  - Fatigue [Recovering/Resolving]
  - Malaise [Unknown]
  - Appendicitis [Recovering/Resolving]

NARRATIVE: CASE EVENT DATE: 2017
